FAERS Safety Report 8844962 (Version 1)
Quarter: 2012Q4

REPORT INFORMATION
  Report Type: Spontaneous
  Country: US (occurrence: None)
  Receive Date: 20121002
  Receipt Date: 20121002
  Transmission Date: 20130627
  Serious: Yes (Other)
  Sender: FDA-Public Use
  Company Number: M-12-005

PATIENT
  Sex: Male

DRUGS (1)
  1. FLUPHENAZINE HYDROCHLORIDE [Suspect]
     Route: 048

REACTIONS (1)
  - Malaise [None]
